FAERS Safety Report 7421733-9 (Version None)
Quarter: 2011Q2

REPORT INFORMATION
  Report Type: 
  Country: None (occurrence: None)
  Receive Date: 20110418
  Receipt Date: 20100524
  Transmission Date: 20111010
  Serious: Yes (Other)
  Sender: FDA-Public Use
  Company Number: US-BAYER-201023203NA

PATIENT
  Age: 79 Year
  Sex: Male
  Weight: 77 kg

DRUGS (10)
  1. METOPROLOL [Concomitant]
  2. TRASYLOL [Suspect]
     Indication: CORONARY ARTERY BYPASS
     Dates: start: 20040621
  3. PLATELETS [Concomitant]
     Dosage: 1 PACK
  4. RED BLOOD CELLS [Concomitant]
  5. TRASYLOL [Suspect]
     Indication: INTRA-AORTIC BALLOON PLACEMENT
  6. TRASYLOL [Suspect]
     Indication: MITRAL VALVE REPAIR
  7. AMIODARONE [Concomitant]
  8. HEPARIN [Concomitant]
     Dosage: 80 MG, UNK
     Dates: start: 20010621, end: 20010621
  9. LOVASTATIN [Concomitant]
     Dosage: UNK
  10. LISINOPRIL [Concomitant]

REACTIONS (7)
  - INJURY [None]
  - FEAR [None]
  - ANHEDONIA [None]
  - ANXIETY [None]
  - CEREBROVASCULAR ACCIDENT [None]
  - PAIN [None]
  - STRESS [None]
